FAERS Safety Report 6314871-5 (Version None)
Quarter: 2009Q3

REPORT INFORMATION
  Report Type: 
  Country: None (occurrence: None)
  Receive Date: 20090817
  Receipt Date: 20090806
  Transmission Date: 20100115
  Serious: Yes (Other)
  Sender: FDA-Public Use
  Company Number: 1000007966

PATIENT
  Age: 72 Year
  Sex: Male

DRUGS (5)
  1. DILTIAZEM [Suspect]
  2. BUDESONIDE [Suspect]
     Dosage: 2000 MCG
  3. ASPIRIN [Concomitant]
  4. ATORVASTATIN [Concomitant]
  5. MOLSIDOMINE [Concomitant]

REACTIONS (2)
  - ADRENAL INSUFFICIENCY [None]
  - DRUG INTERACTION [None]
